FAERS Safety Report 4609870-5 (Version None)
Quarter: 2005Q1

REPORT INFORMATION
  Report Type: 
  Country: None (occurrence: None)
  Receive Date: 20050316
  Receipt Date: 20050311
  Transmission Date: 20050727
  Serious: Yes (Disabling)
  Sender: FDA-Public Use
  Company Number: US-MERCK-0503USA01799

PATIENT
  Age: 76 Year
  Sex: Female

DRUGS (2)
  1. FOSAMAX [Suspect]
     Indication: OSTEOPOROSIS
     Route: 048
     Dates: start: 20030901, end: 20040101
  2. ATENOLOL [Concomitant]
     Route: 065

REACTIONS (4)
  - ARTHRALGIA [None]
  - BURNING SENSATION [None]
  - GROIN PAIN [None]
  - PAIN IN EXTREMITY [None]
